FAERS Safety Report 21340725 (Version 3)
Quarter: 2023Q1

REPORT INFORMATION
  Report Type: Report from Study
  Country: US (occurrence: None)
  Receive Date: 20220916
  Receipt Date: 20230207
  Transmission Date: 20230418
  Serious: Yes (Life-Threatening, Hospitalization)
  Sender: FDA-Public Use
  Company Number: 2022A272635

PATIENT
  Age: 20940 Day
  Sex: Female
  Weight: 59.3 kg

DRUGS (33)
  1. DATOPOTAMAB DERUXTECAN [Suspect]
     Active Substance: DATOPOTAMAB DERUXTECAN
     Indication: Non-small cell lung cancer metastatic
     Dosage: 6.0 MG/KG, ONCE EVERY 3 WK
     Route: 042
     Dates: start: 20211117, end: 20211117
  2. DATOPOTAMAB DERUXTECAN [Suspect]
     Active Substance: DATOPOTAMAB DERUXTECAN
     Indication: Non-small cell lung cancer metastatic
     Dosage: 6.0 MG/KG, ONCE EVERY 3 WK
     Route: 042
     Dates: start: 20211208, end: 20211208
  3. DATOPOTAMAB DERUXTECAN [Suspect]
     Active Substance: DATOPOTAMAB DERUXTECAN
     Indication: Non-small cell lung cancer metastatic
     Dosage: 6.0 MG/KG, ONCE EVERY 3 WK
     Route: 042
     Dates: start: 20211228, end: 20211228
  4. DATOPOTAMAB DERUXTECAN [Suspect]
     Active Substance: DATOPOTAMAB DERUXTECAN
     Indication: Non-small cell lung cancer metastatic
     Dosage: 6.0 MG/KG, ONCE EVERY 3 WK
     Route: 042
     Dates: start: 20220118, end: 20220118
  5. DATOPOTAMAB DERUXTECAN [Suspect]
     Active Substance: DATOPOTAMAB DERUXTECAN
     Indication: Non-small cell lung cancer metastatic
     Dosage: 6.0 MG/KG, ONCE EVERY 3 WK
     Route: 042
     Dates: start: 20220215, end: 20220215
  6. DATOPOTAMAB DERUXTECAN [Suspect]
     Active Substance: DATOPOTAMAB DERUXTECAN
     Indication: Non-small cell lung cancer metastatic
     Dosage: 6.0 MG/KG, ONCE EVERY 3 WK
     Route: 042
     Dates: start: 20220308, end: 20220308
  7. DATOPOTAMAB DERUXTECAN [Suspect]
     Active Substance: DATOPOTAMAB DERUXTECAN
     Indication: Non-small cell lung cancer metastatic
     Dosage: 6.0 MG/KG, ONCE EVERY 3 WK
     Route: 042
     Dates: start: 20220419, end: 20220419
  8. DATOPOTAMAB DERUXTECAN [Suspect]
     Active Substance: DATOPOTAMAB DERUXTECAN
     Indication: Non-small cell lung cancer metastatic
     Dosage: 6.0 MG/KG, ONCE EVERY 3 WK
     Route: 042
     Dates: start: 20220510, end: 20220510
  9. DATOPOTAMAB DERUXTECAN [Suspect]
     Active Substance: DATOPOTAMAB DERUXTECAN
     Indication: Non-small cell lung cancer metastatic
     Dosage: 6.0 MG/KG, ONCE EVERY 3 WK
     Route: 042
     Dates: start: 20220531, end: 20220531
  10. DATOPOTAMAB DERUXTECAN [Suspect]
     Active Substance: DATOPOTAMAB DERUXTECAN
     Indication: Non-small cell lung cancer metastatic
     Dosage: 6.0 MG/KG, ONCE EVERY 3 WK
     Route: 042
     Dates: start: 20220621, end: 20220621
  11. DURVALUMAB [Suspect]
     Active Substance: DURVALUMAB
     Indication: Non-small cell lung cancer metastatic
     Dosage: 1120 MG, ONCE EVERY 3 WK
     Route: 042
     Dates: start: 20211117, end: 20211117
  12. DURVALUMAB [Suspect]
     Active Substance: DURVALUMAB
     Indication: Non-small cell lung cancer metastatic
     Dosage: 1120 MG, ONCE EVERY 3 WK
     Route: 042
     Dates: start: 20211208, end: 20211208
  13. DURVALUMAB [Suspect]
     Active Substance: DURVALUMAB
     Indication: Non-small cell lung cancer metastatic
     Dosage: 1120 MG, ONCE EVERY 3 WK
     Route: 042
     Dates: start: 20211228, end: 20211228
  14. DURVALUMAB [Suspect]
     Active Substance: DURVALUMAB
     Indication: Non-small cell lung cancer metastatic
     Dosage: 1120 MG, ONCE EVERY 3 WK
     Route: 042
     Dates: start: 20220118, end: 20220118
  15. DURVALUMAB [Suspect]
     Active Substance: DURVALUMAB
     Indication: Non-small cell lung cancer metastatic
     Dosage: 1120 MG, ONCE EVERY 3 WK
     Route: 042
     Dates: start: 20220215, end: 20220215
  16. DURVALUMAB [Suspect]
     Active Substance: DURVALUMAB
     Indication: Non-small cell lung cancer metastatic
     Dosage: 1120 MG, ONCE EVERY 3 WK
     Route: 042
     Dates: start: 20220308, end: 20220308
  17. DURVALUMAB [Suspect]
     Active Substance: DURVALUMAB
     Indication: Non-small cell lung cancer metastatic
     Dosage: 1120 MG, ONCE EVERY 3 WK
     Route: 042
     Dates: start: 20220419, end: 20220419
  18. DURVALUMAB [Suspect]
     Active Substance: DURVALUMAB
     Indication: Non-small cell lung cancer metastatic
     Dosage: 1120 MG, ONCE EVERY 3 WK
     Route: 042
     Dates: start: 20220510, end: 20220510
  19. DURVALUMAB [Suspect]
     Active Substance: DURVALUMAB
     Indication: Non-small cell lung cancer metastatic
     Dosage: 1120 MG, ONCE EVERY 3 WK
     Route: 042
     Dates: start: 20220531, end: 20220531
  20. DURVALUMAB [Suspect]
     Active Substance: DURVALUMAB
     Indication: Non-small cell lung cancer metastatic
     Dosage: 1120 MG, ONCE EVERY 3 WK
     Route: 042
     Dates: start: 20220621, end: 20220621
  21. CARBOPLATIN [Suspect]
     Active Substance: CARBOPLATIN
     Indication: Non-small cell lung cancer metastatic
     Dosage: 571 MG, ONCE EVERY 3 WK
     Route: 042
     Dates: start: 20211117, end: 20211117
  22. CARBOPLATIN [Suspect]
     Active Substance: CARBOPLATIN
     Indication: Non-small cell lung cancer metastatic
     Dosage: 635 MG, ONCE EVERY 3 WK
     Route: 042
     Dates: start: 20211208, end: 20211208
  23. CARBOPLATIN [Suspect]
     Active Substance: CARBOPLATIN
     Indication: Non-small cell lung cancer metastatic
     Dosage: 587 MG, ONCE EVERY 3 WK
     Route: 042
     Dates: start: 20211228, end: 20211228
  24. CARBOPLATIN [Suspect]
     Active Substance: CARBOPLATIN
     Indication: Non-small cell lung cancer metastatic
     Dosage: 638 MG, ONCE EVERY 3 WK
     Route: 042
     Dates: start: 20220118, end: 20220118
  25. PREDNISOLONE [Concomitant]
     Active Substance: PREDNISOLONE
     Indication: Hyperthyroidism
     Dosage: 10 MG, QD
     Route: 048
     Dates: start: 20220419
  26. SODIUM PHOSPHATE, DIBASIC [Concomitant]
     Active Substance: SODIUM PHOSPHATE, DIBASIC
     Indication: Constipation
     Dosage: 1 DF(ENEMA), AS NEEDED
     Route: 054
     Dates: start: 20211103
  27. GLYCERIN [Concomitant]
     Active Substance: GLYCERIN
     Indication: Constipation
     Dosage: 1 DF (SUPPOSITORY), AS NEEDED
     Route: 065
     Dates: start: 20211117
  28. ACETAMINOPHEN [Concomitant]
     Active Substance: ACETAMINOPHEN
     Indication: Pain
     Dosage: 325 MG, SINGLE
     Route: 065
     Dates: start: 20211015
  29. UMECLIDINIUM BROMIDE [Concomitant]
     Active Substance: UMECLIDINIUM BROMIDE
     Indication: Dyspnoea
     Dosage: 1 DF, QD
     Route: 065
     Dates: start: 20211022
  30. CODEINE PHOSPHATE/ACETYLSALICYLIC ACID ALUMINIUM/PHENOBARBITAL/PARACET [Concomitant]
     Dosage: 81 MG, QD
     Route: 065
     Dates: start: 20211019
  31. PROCHLORPERAZINE [Concomitant]
     Active Substance: PROCHLORPERAZINE
     Indication: Prophylaxis
     Dosage: 81 MG, QD10 MG, AS NEEDED
     Route: 065
     Dates: start: 20211117
  32. ONDANSETRON [Concomitant]
     Active Substance: ONDANSETRON
     Indication: Prophylaxis
     Dosage: 4 MG, AS NEEDED
     Route: 065
     Dates: start: 20211117
  33. ASPIRIN [Concomitant]
     Active Substance: ASPIRIN
     Indication: Dyslipidaemia
     Dosage: 81 MILIGRAMS DAILY
     Route: 048
     Dates: start: 20211019

REACTIONS (1)
  - Colitis [Recovered/Resolved]

NARRATIVE: CASE EVENT DATE: 20220722
